FAERS Safety Report 10367246 (Version 1)
Quarter: 2014Q3

REPORT INFORMATION
  Report Type: Spontaneous
  Country: US (occurrence: None)
  Receive Date: 20140805
  Receipt Date: 20140805
  Transmission Date: 20150326
  Serious: No
  Sender: FDA-Public Use
  Company Number: None

PATIENT
  Age: 45 Year
  Sex: Female
  Weight: 56.7 kg

DRUGS (1)
  1. FEMRING [Suspect]
     Active Substance: ESTRADIOL ACETATE
     Indication: HORMONE REPLACEMENT THERAPY
     Dosage: 1 RING EVERY 3 MONTHS, 1 RING EVERY 3 MON, VAGINAL
     Route: 067
     Dates: start: 20140604, end: 20140804

REACTIONS (7)
  - Eyelid oedema [None]
  - Pharyngeal oedema [None]
  - Lip swelling [None]
  - Joint swelling [None]
  - Skin reaction [None]
  - Urticaria [None]
  - Pruritus [None]

NARRATIVE: CASE EVENT DATE: 20140804
